FAERS Safety Report 4466987-6 (Version None)
Quarter: 2004Q4

REPORT INFORMATION
  Report Type: 
  Country: None (occurrence: None)
  Receive Date: 20041005
  Receipt Date: 20040930
  Transmission Date: 20050328
  Serious: No
  Sender: FDA-Public Use
  Company Number: 2004UW18020

PATIENT
  Age: 37 Year
  Sex: Male
  Weight: 87.9978 kg

DRUGS (3)
  1. CRESTOR [Suspect]
     Dosage: 5 MG DAILY PO
     Route: 048
     Dates: start: 20040401
  2. ZETIA [Concomitant]
  3. FOLIC CID [Concomitant]

REACTIONS (1)
  - BLADDER CANCER [None]
